FAERS Safety Report 10072609 (Version 1)
Quarter: 2014Q2

REPORT INFORMATION
  Report Type: Spontaneous
  Country: CA (occurrence: None)
  Receive Date: 20140409
  Receipt Date: 20140409
  Transmission Date: 20141212
  Serious: Yes (Death, Hospitalization)
  Sender: FDA-Public Use
  Company Number: IPC201403-000145

PATIENT
  Age: 74 Year
  Sex: Female

DRUGS (8)
  1. FUROSEMIDE [Suspect]
     Indication: OEDEMA PERIPHERAL
     Dosage: INCREASE 40MG DAILY
  2. MIRTAZAPINE [Suspect]
     Indication: MAJOR DEPRESSION
  3. DIMENHYDRINATE [Suspect]
     Indication: VOMITING
  4. MORPHINE [Suspect]
     Indication: PAIN
  5. DOCUSATE SODIUM [Suspect]
     Indication: CONSTIPATION
  6. LACTULOSE [Suspect]
     Indication: CONSTIPATION
  7. BISACODYL [Suspect]
     Indication: CONSTIPATION
  8. SODIUM PHOSPHATE [Suspect]
     Indication: CONSTIPATION

REACTIONS (9)
  - Colonic pseudo-obstruction [None]
  - Delirium [None]
  - Urinary retention [None]
  - Drug interaction [None]
  - Activities of daily living impaired [None]
  - Altered state of consciousness [None]
  - Sudden death [None]
  - Myocardial infarction [None]
  - Post procedural complication [None]
